FAERS Safety Report 8658579 (Version 2)
Quarter: 2012Q4

REPORT INFORMATION
  Report Type: 
  Country: DE (occurrence: DE)
  Receive Date: 20120710
  Receipt Date: 20121012
  Transmission Date: 20130627
  Serious: Yes (Hospitalization)
  Sender: FDA-Public Use
  Company Number: PHHY2011DE82029

PATIENT
  Age: 33 Year
  Sex: Female

DRUGS (1)
  1. LEPONEX [Suspect]
     Indication: SCHIZOPHRENIA, PARANOID TYPE
     Dosage: 12.5 mg, QD
     Route: 048
     Dates: start: 1994

REACTIONS (3)
  - Placental disorder [Unknown]
  - Normal newborn [Unknown]
  - Maternal exposure during pregnancy [Unknown]
